FAERS Safety Report 20947832 (Version 1)
Quarter: 2022Q2

REPORT INFORMATION
  Report Type: Spontaneous
  Country: US (occurrence: US)
  Receive Date: 20220611
  Receipt Date: 20220611
  Transmission Date: 20220721
  Serious: No
  Sender: FDA-Public Use
  Company Number: US-TEVA-2022-US-2045943

PATIENT
  Sex: Male

DRUGS (1)
  1. AMLODIPINE [Suspect]
     Active Substance: AMLODIPINE BESYLATE
     Indication: Hypertension
     Dosage: 5MG DAILY
     Route: 048
     Dates: start: 20141016, end: 20141112

REACTIONS (3)
  - Drug intolerance [Unknown]
  - Vomiting [Unknown]
  - Retching [Unknown]
